FAERS Safety Report 7586141-9 (Version None)
Quarter: 2011Q3

REPORT INFORMATION
  Report Type: 
  Country: None (occurrence: None)
  Receive Date: 20110701
  Receipt Date: 20110523
  Transmission Date: 20111222
  Serious: Yes (Hospitalization, Other)
  Sender: FDA-Public Use
  Company Number: US-BAYER-201040714NA

PATIENT
  Age: 29 Year
  Sex: Female
  Weight: 68 kg

DRUGS (5)
  1. YASMIN [Suspect]
     Indication: ORAL CONTRACEPTION
     Dosage: UNK UNK, UNK
     Route: 048
     Dates: start: 20071015, end: 20080101
  2. YASMIN [Suspect]
     Indication: PREMENSTRUAL SYNDROME
  3. ZOLOFT [Concomitant]
  4. HYOSCYAMINE [Concomitant]
     Dosage: 0.125 MG, UNK
  5. PROMETHAZINE [Concomitant]
     Dosage: 25 MG, UNK

REACTIONS (2)
  - GALLBLADDER DISORDER [None]
  - BILIARY DYSKINESIA [None]
